FAERS Safety Report 21854133 (Version 4)
Quarter: 2023Q1

REPORT INFORMATION
  Report Type: Report from Study
  Country: MX (occurrence: MX)
  Receive Date: 20230112
  Receipt Date: 20230313
  Transmission Date: 20230418
  Serious: Yes (Other)
  Sender: FDA-Public Use
  Company Number: MX-BAYER-2022A163726

PATIENT
  Age: 69 Year
  Sex: Female

DRUGS (2)
  1. NEXAVAR [Suspect]
     Active Substance: SORAFENIB
     Indication: Renal cell carcinoma
     Dosage: 400 MG, BID
     Route: 048
     Dates: start: 20221020, end: 20221221
  2. NEXAVAR [Suspect]
     Active Substance: SORAFENIB
     Indication: Renal cell carcinoma
     Dosage: DAILY DOSE 600 MG (400 MG IN THE MORNING AND 200 MG IN THE MORNING )
     Dates: start: 20230104, end: 20230126

REACTIONS (12)
  - Oropharyngeal blistering [Recovering/Resolving]
  - Skin lesion [Not Recovered/Not Resolved]
  - Acne [Not Recovered/Not Resolved]
  - Tongue haemorrhage [Recovering/Resolving]
  - Hot flush [Not Recovered/Not Resolved]
  - Blister [Recovering/Resolving]
  - Dry skin [Not Recovered/Not Resolved]
  - Oropharyngeal pain [Recovered/Resolved with Sequelae]
  - Oral mucosal blistering [Recovering/Resolving]
  - Gait disturbance [Recovering/Resolving]
  - Blister [Recovering/Resolving]
  - Stomatitis [Not Recovered/Not Resolved]

NARRATIVE: CASE EVENT DATE: 20221109
